FAERS Safety Report 25851213 (Version 2)
Quarter: 2025Q4

REPORT INFORMATION
  Report Type: Spontaneous
  Country: US (occurrence: US)
  Receive Date: 20250926
  Receipt Date: 20251207
  Transmission Date: 20260118
  Serious: No
  Sender: GLAXOSMITHKLINE
  Company Number: US-GSK-US2025121614

PATIENT
  Age: 41 Year
  Sex: Female

DRUGS (1)
  1. NUCALA [Suspect]
     Active Substance: MEPOLIZUMAB
     Indication: Asthma
     Dosage: 100 MG, Q4W
     Dates: start: 20250921

REACTIONS (3)
  - Accidental exposure to product [Unknown]
  - Product dose omission issue [Unknown]
  - Product complaint [Unknown]

NARRATIVE: CASE EVENT DATE: 20250921
